FAERS Safety Report 6153191-9 (Version None)
Quarter: 2009Q2

REPORT INFORMATION
  Report Type: 
  Country: None (occurrence: None)
  Receive Date: 20090409
  Receipt Date: 20090406
  Transmission Date: 20091009
  Serious: Yes (Hospitalization)
  Sender: FDA-Public Use
  Company Number: 09GB000579

PATIENT
  Age: 61 Year
  Sex: Male

DRUGS (5)
  1. IBUPROFEN [Suspect]
     Indication: BACK PAIN
     Dosage: 400 MG, TID, ORAL
     Route: 048
     Dates: end: 20090316
  2. IBUPROFEN [Suspect]
     Indication: MUSCULOSKELETAL PAIN
     Dosage: 400 MG, TID, ORAL
     Route: 048
     Dates: end: 20090316
  3. AMITRIPTYLINE (AMITRIPTYLINE PAMOATE) [Concomitant]
  4. CODEINE PHOSPHATE AND ACETAMINOPHEN [Concomitant]
  5. LANSOPRAZOLE [Concomitant]

REACTIONS (2)
  - DYSPEPSIA [None]
  - HAEMATEMESIS [None]
